FAERS Safety Report 7521382-8 (Version None)
Quarter: 2011Q2

REPORT INFORMATION
  Report Type: 
  Country: None (occurrence: None)
  Receive Date: 20110603
  Receipt Date: 20101206
  Transmission Date: 20111010
  Serious: Yes (Other)
  Sender: FDA-Public Use
  Company Number: US-BAYER-2010-003101

PATIENT
  Age: 44 Year
  Sex: Female

DRUGS (2)
  1. YASMIN [Suspect]
     Dosage: UNK
     Dates: start: 20081001, end: 20090201
  2. YAZ [Suspect]
     Dosage: UNK
     Dates: start: 20081001, end: 20090201

REACTIONS (1)
  - CEREBROVASCULAR ACCIDENT [None]
